FAERS Safety Report 15774010 (Version 1)
Quarter: 2018Q4

REPORT INFORMATION
  Report Type: Spontaneous
  Country: FR (occurrence: FR)
  Receive Date: 20181229
  Receipt Date: 20181229
  Transmission Date: 20190205
  Serious: Yes (Other)
  Sender: FDA-Public Use
  Company Number: FR-TEVA-2018-FR-991933

PATIENT
  Age: 84 Year
  Sex: Female
  Weight: 118 kg

DRUGS (15)
  1. MOVICOL [Suspect]
     Active Substance: POLYETHYLENE GLYCOL 3350\POTASSIUM CHLORIDE\SODIUM BICARBONATE\SODIUM CHLORIDE
     Indication: CONSTIPATION
     Dosage: 39 GRAM DAILY; 13 G SB 3 / DAY
     Route: 048
     Dates: start: 20181110
  2. IPRATROPIUM (BROMURE D^) [Suspect]
     Active Substance: IPRATROPIUM
     Indication: ASTHMA
     Dosage: 3 DOSAGE FORMS DAILY; 0.5MG/2ML : 1-1-1
     Route: 055
     Dates: start: 20181108, end: 20181127
  3. ROCEPHINE [Suspect]
     Active Substance: CEFTRIAXONE SODIUM
     Indication: INFECTION
     Dosage: 1 GRAM DAILY; 0-0-1
     Route: 042
     Dates: start: 20181112, end: 20181119
  4. MIMPARA 30 MG, COMPRIM? PELLICUL? [Suspect]
     Active Substance: CINACALCET HYDROCHLORIDE
     Indication: HYPERCALCAEMIA
     Dosage: 30 MILLIGRAM DAILY; 1-0-0
     Route: 048
     Dates: start: 20181123, end: 20181125
  5. PAMIDRONATE DE SODIUM [Suspect]
     Active Substance: PAMIDRONATE DISODIUM
     Indication: HYPERCALCAEMIA
     Dosage: 60 MILLIGRAM DAILY;
     Route: 042
     Dates: start: 20181122, end: 20181123
  6. COLCHICINE. [Suspect]
     Active Substance: COLCHICINE
     Indication: GOUTY ARTHRITIS
     Dosage: .5 MILLIGRAM DAILY; 1-0-0
     Route: 048
     Dates: start: 20181113, end: 20181128
  7. AUGMENTIN [Suspect]
     Active Substance: AMOXICILLIN\CLAVULANATE POTASSIUM
     Indication: INFECTION
     Dosage: 3 DOSAGE FORMS DAILY; 1G/125MG : 1-1-1
     Route: 048
     Dates: start: 20181110, end: 20181112
  8. PHOSPHONEUROS [Suspect]
     Active Substance: CALCIUM PHOSPHATE, DIBASIC, ANHYDROUS\MAGNESIUM GLYCEROPHOSPHATE\PHOSPHORIC ACID\SODIUM PHOSPHATE, DIBASIC
     Indication: BLOOD PHOSPHORUS DECREASED
     Dosage: 10 GTT DAILY; ????7.88 MG / DROP, 0-10G
     Route: 048
     Dates: start: 20181109, end: 20181119
  9. MAG 2 [Suspect]
     Active Substance: MAGNESIUM CHLORIDE
     Indication: HYPOVITAMINOSIS
     Dosage: 2 DOSAGE FORMS DAILY; 1-0-1 (SACHET)
     Route: 048
     Dates: start: 20181109
  10. ESIDREX [Suspect]
     Active Substance: HYDROCHLOROTHIAZIDE
     Indication: HYPERTENSION
     Dosage: 25 MILLIGRAM DAILY;
     Route: 048
     Dates: start: 20181108, end: 20181119
  11. CALCIPARINE [Suspect]
     Active Substance: HEPARIN CALCIUM
     Indication: THROMBOSIS PROPHYLAXIS
     Dosage: 5000 IU (INTERNATIONAL UNIT) DAILY; 5000 UI
     Route: 058
     Dates: start: 20181110, end: 20181203
  12. TRIATEC (RAMIPRIL) [Suspect]
     Active Substance: RAMIPRIL
     Indication: HYPERTENSION
     Dosage: 1.25 MILLIGRAM DAILY; 1-0-0
     Route: 048
     Dates: start: 20181123
  13. SALBUTAMOL MYLAN [Suspect]
     Active Substance: ALBUTEROL
     Indication: ASTHMA
     Dosage: 15 MILLIGRAM DAILY; 1-1-1
     Route: 055
     Dates: start: 20181108, end: 20181128
  14. SMECTA [Suspect]
     Active Substance: MONTMORILLONITE
     Indication: DIARRHOEA
     Dosage: 9 GRAM DAILY; ????3 G SB 3 / DAY
     Route: 048
     Dates: start: 20181106, end: 20181113
  15. ROVAMYCINE (SPIRAMYCIN) [Suspect]
     Active Substance: SPIRAMYCIN
     Indication: INFECTION
     Dosage: 9 MU DAILY; 1-1-1
     Route: 048
     Dates: start: 20181114, end: 20181115

REACTIONS (2)
  - Rash pruritic [Recovering/Resolving]
  - Erythema [Recovering/Resolving]

NARRATIVE: CASE EVENT DATE: 20181125
